FAERS Safety Report 4546441-3 (Version None)
Quarter: 2005Q1

REPORT INFORMATION
  Report Type: 
  Country: None (occurrence: None)
  Receive Date: 20050103
  Receipt Date: 20041213
  Transmission Date: 20050727
  Serious: Yes (Death, Hospitalization)
  Sender: FDA-Public Use
  Company Number: EWC041241659

PATIENT
  Age: 54 Year
  Sex: Female
  Weight: 62 kg

DRUGS (16)
  1. XIGRIS [Suspect]
     Indication: SEPSIS
     Dosage: 24 UG/KG/HR
     Dates: start: 20041104, end: 20041109
  2. PARECOXIB SODIUM [Concomitant]
  3. AUGMENTINE [Concomitant]
  4. IMIPENEM [Concomitant]
  5. AMIKACINE ^ION^ (AMIKACIN) [Concomitant]
  6. FRAXIPARINE (NADROPARIN CALCIUM) [Concomitant]
  7. KETOROLAC [Concomitant]
  8. EPOGEN [Concomitant]
  9. HYDROCORTISONE [Concomitant]
  10. RANITIDINE [Concomitant]
  11. MIDAZOLAM HCL [Concomitant]
  12. REMIFENTANIL [Concomitant]
  13. DOBUTAMINE HCL [Concomitant]
  14. FUROSEMIDE [Concomitant]
  15. EUFILINA (AMINOPHYLLINE) [Concomitant]
  16. IRON [Concomitant]

REACTIONS (11)
  - ABDOMINAL ABSCESS [None]
  - ACTIVATED PARTIAL THROMBOPLASTIN TIME SHORTENED [None]
  - ACUTE PULMONARY OEDEMA [None]
  - BASOPHILIA [None]
  - BLOOD BILIRUBIN INCREASED [None]
  - BRAIN OEDEMA [None]
  - CEREBRAL HAEMORRHAGE [None]
  - METASTASES TO CENTRAL NERVOUS SYSTEM [None]
  - MYDRIASIS [None]
  - PROTHROMBIN TIME PROLONGED [None]
  - THROMBOCYTOPENIA [None]
